FAERS Safety Report 5554751-6 (Version None)
Quarter: 2007Q4

REPORT INFORMATION
  Report Type: 
  Country: None (occurrence: None)
  Receive Date: 20071211
  Receipt Date: 20071211
  Transmission Date: 20080405
  Serious: No
  Sender: FDA-Public Use
  Company Number: None

PATIENT

DRUGS (3)
  1. BETAMETHASONE [Suspect]
     Dates: start: 20070822
  2. BETAMETHASONE [Suspect]
     Dates: start: 20070912
  3. BETAMETHASONE [Suspect]
     Dates: start: 20070926

REACTIONS (2)
  - CONDITION AGGRAVATED [None]
  - PAIN [None]
